FAERS Safety Report 15762188 (Version 1)
Quarter: 2018Q4

REPORT INFORMATION
  Report Type: Report from Study
  Country: US (occurrence: US)
  Receive Date: 20181226
  Receipt Date: 20181226
  Transmission Date: 20190205
  Serious: Yes (Hospitalization)
  Sender: FDA-Public Use
  Company Number: US-JNJFOC-20181230915

PATIENT
  Sex: Female

DRUGS (15)
  1. CRANBERRY. [Concomitant]
     Active Substance: CRANBERRY
  2. FLONASE [Concomitant]
     Active Substance: FLUTICASONE PROPIONATE
  3. SYNTHROID [Concomitant]
     Active Substance: LEVOTHYROXINE SODIUM
  4. ACETAMINOPHEN. [Concomitant]
     Active Substance: ACETAMINOPHEN
  5. SODIUM CHLORIDE. [Concomitant]
     Active Substance: SODIUM CHLORIDE
     Dosage: 0.65 %, UNK
  6. CALCIUM CARBONATE W/COLECALCIFEROL [Concomitant]
     Active Substance: CALCIUM CARBONATE\CHOLECALCIFEROL
  7. MULTIVITAMINS [Concomitant]
     Active Substance: VITAMINS
  8. DOCOSAHEXAENOIC ACID [Concomitant]
     Active Substance: DOCONEXENT
  9. ASCORBIC ACID. [Concomitant]
     Active Substance: ASCORBIC ACID
  10. DIPHENHYDRAMIN [Concomitant]
     Active Substance: DIPHENHYDRAMINE
  11. IMBRUVICA [Suspect]
     Active Substance: IBRUTINIB
     Indication: LYMPHOCYTIC LEUKAEMIA
     Route: 048
     Dates: start: 20181102
  12. CYANOCOBALAMIN. [Concomitant]
     Active Substance: CYANOCOBALAMIN
  13. LORATADINE. [Concomitant]
     Active Substance: LORATADINE
  14. LOPRESSOR [Concomitant]
     Active Substance: METOPROLOL TARTRATE
  15. KEFLEX [Concomitant]
     Active Substance: CEPHALEXIN

REACTIONS (2)
  - Gastrointestinal inflammation [Unknown]
  - Urinary tract infection [Unknown]
